FAERS Safety Report 14895394 (Version 1)
Quarter: 2018Q2

REPORT INFORMATION
  Report Type: Spontaneous
  Country: FR (occurrence: FR)
  Receive Date: 20180515
  Receipt Date: 20180515
  Transmission Date: 20180711
  Serious: Yes (Other)
  Sender: FDA-Public Use
  Company Number: FR-MERCK KGAA-2047744

PATIENT
  Age: 36 Year
  Sex: Female

DRUGS (1)
  1. NOVOTHYROX [Suspect]
     Active Substance: LEVOTHYROXINE SODIUM
     Indication: PRODUCT USED FOR UNKNOWN INDICATION
     Dates: start: 201704, end: 2017

REACTIONS (38)
  - Myalgia [Recovering/Resolving]
  - Muscle spasms [Recovering/Resolving]
  - Hyperhidrosis [Recovering/Resolving]
  - Nightmare [Recovering/Resolving]
  - Stress [Recovering/Resolving]
  - Alopecia [Recovering/Resolving]
  - Decreased appetite [Recovering/Resolving]
  - Weight decreased [Recovering/Resolving]
  - Amnesia [Recovering/Resolving]
  - Decreased activity [Recovering/Resolving]
  - Asthenia [Recovering/Resolving]
  - Temperature intolerance [Recovering/Resolving]
  - Psychomotor retardation [Recovering/Resolving]
  - Tachycardia [Recovering/Resolving]
  - Increased appetite [Recovering/Resolving]
  - Psychomotor hyperactivity [Recovering/Resolving]
  - Dizziness [Recovering/Resolving]
  - Diarrhoea [Recovering/Resolving]
  - Middle insomnia [Recovering/Resolving]
  - Aphasia [Recovering/Resolving]
  - Suicidal ideation [Recovering/Resolving]
  - Depression [Recovering/Resolving]
  - Fatigue [Recovering/Resolving]
  - Vision blurred [Recovering/Resolving]
  - Anxiety [Recovering/Resolving]
  - Insomnia [Recovering/Resolving]
  - Social avoidant behaviour [Recovering/Resolving]
  - Tremor [Recovering/Resolving]
  - Dry skin [Recovering/Resolving]
  - Mydriasis [Recovering/Resolving]
  - Nervousness [Recovering/Resolving]
  - Irritability [Recovering/Resolving]
  - Disturbance in attention [Recovering/Resolving]
  - Family stress [Recovering/Resolving]
  - Constipation [Recovering/Resolving]
  - Confusional state [Recovering/Resolving]
  - Loss of personal independence in daily activities [Recovering/Resolving]
  - Divorced [Recovering/Resolving]

NARRATIVE: CASE EVENT DATE: 2017
